FAERS Safety Report 4524876-2 (Version None)
Quarter: 2004Q4

REPORT INFORMATION
  Report Type: 
  Country: None (occurrence: None)
  Receive Date: 20041213
  Receipt Date: 20040916
  Transmission Date: 20050328
  Serious: Yes (Hospitalization, Disabling)
  Sender: FDA-Public Use
  Company Number: CA-BRISTOL-MYERS SQUIBB COMPANY-12705299

PATIENT
  Age: 67 Year
  Sex: Female
  Weight: 54 kg

DRUGS (4)
  1. WARFARIN SODIUM [Suspect]
     Indication: PROPHYLAXIS
     Route: 048
     Dates: start: 20040617
  2. IRBESARTAN [Suspect]
     Indication: HYPERTENSION
     Route: 048
     Dates: start: 20040618
  3. BLINDED: PLACEBO [Suspect]
     Indication: HYPERTENSION
     Route: 048
     Dates: start: 20040618
  4. TIAZAC [Concomitant]

REACTIONS (4)
  - ANAEMIA [None]
  - HAEMORRHAGE [None]
  - PALPITATIONS [None]
  - RENAL FAILURE [None]
